FAERS Safety Report 8011901-X (Version None)
Quarter: 2011Q4

REPORT INFORMATION
  Report Type: 
  Country: None (occurrence: None)
  Receive Date: 20111228
  Receipt Date: 20111228
  Transmission Date: 20120403
  Serious: Yes (Hospitalization)
  Sender: FDA-Public Use
  Company Number: JP-EISAI INC-E2020-10157-CLI-JP

PATIENT
  Sex: Female
  Weight: 51 kg

DRUGS (8)
  1. DONEPEZIL HCL [Suspect]
     Indication: PARKINSON'S DISEASE
     Dosage: DOUBLE BLIND
     Route: 048
     Dates: start: 20111221, end: 20111222
  2. CABERGOLINE [Concomitant]
     Indication: PARKINSON'S DISEASE
     Route: 048
     Dates: start: 20090324
  3. MAGMITT [Concomitant]
     Indication: CONSTIPATION
     Route: 048
     Dates: start: 20111220
  4. MEVARICH [Concomitant]
     Route: 048
     Dates: start: 20090724
  5. CLONAZEPAM [Concomitant]
     Indication: INSOMNIA
     Route: 048
     Dates: start: 20080805
  6. YAKUBAN [Concomitant]
     Indication: SPONDYLOLISTHESIS
     Dosage: AC
  7. PRORANON [Concomitant]
     Route: 031
     Dates: start: 20110201
  8. MADOPAR [Concomitant]
     Indication: PARKINSON'S DISEASE
     Route: 048
     Dates: start: 20100413

REACTIONS (1)
  - ENTEROCOLITIS [None]
